FAERS Safety Report 24321188 (Version 1)
Quarter: 2024Q3

REPORT INFORMATION
  Report Type: Spontaneous
  Country: ES (occurrence: None)
  Receive Date: 20240916
  Receipt Date: 20240916
  Transmission Date: 20241016
  Serious: Yes (Other)
  Sender: ASTRAZENECA
  Company Number: 2024A204200

PATIENT

DRUGS (11)
  1. GEFITINIB [Suspect]
     Active Substance: GEFITINIB
     Indication: Neoplasm malignant
  2. SORAFENIB [Suspect]
     Active Substance: SORAFENIB
     Indication: Neoplasm malignant
  3. PAZOPANIB [Suspect]
     Active Substance: PAZOPANIB
     Indication: Neoplasm malignant
  4. ERLOTINIB [Suspect]
     Active Substance: ERLOTINIB
     Indication: Neoplasm malignant
  5. SUNITINIB [Suspect]
     Active Substance: SUNITINIB
     Indication: Neoplasm malignant
     Dosage: 12.5 MG / 1 EA
  6. IBRUTINIB [Suspect]
     Active Substance: IBRUTINIB
     Indication: Neoplasm malignant
  7. IMATINIB MESYLATE [Suspect]
     Active Substance: IMATINIB MESYLATE
     Indication: Neoplasm malignant
  8. AXITINIB [Suspect]
     Active Substance: AXITINIB
     Indication: Neoplasm malignant
  9. RITUXIMAB [Suspect]
     Active Substance: RITUXIMAB
  10. LENALIDOMIDE [Suspect]
     Active Substance: LENALIDOMIDE
  11. PEMBROLIZUMAB [Suspect]
     Active Substance: PEMBROLIZUMAB

REACTIONS (8)
  - Mucosal inflammation [Unknown]
  - Hepatobiliary disease [Unknown]
  - Blood disorder [Unknown]
  - Cardiovascular disorder [Unknown]
  - Fatigue [Unknown]
  - Skin disorder [Unknown]
  - Nervous system disorder [Unknown]
  - Gastrointestinal disorder [Unknown]
